APPROVED DRUG PRODUCT: FLUPHENAZINE HYDROCHLORIDE
Active Ingredient: FLUPHENAZINE HYDROCHLORIDE
Strength: 2.5MG/5ML
Dosage Form/Route: ELIXIR;ORAL
Application: A040146 | Product #001
Applicant: PHARMACEUTICAL ASSOCIATES INC
Approved: Aug 21, 1996 | RLD: No | RS: Yes | Type: RX